FAERS Safety Report 20171010 (Version 2)
Quarter: 2021Q4

REPORT INFORMATION
  Report Type: Spontaneous
  Country: FR (occurrence: FR)
  Receive Date: 20211210
  Receipt Date: 20211213
  Transmission Date: 20220303
  Serious: Yes (Life-Threatening, Hospitalization)
  Sender: FDA-Public Use
  Company Number: None

PATIENT
  Age: 16 Year
  Sex: Male
  Weight: 77 kg

DRUGS (11)
  1. SEVOFLURANE [Suspect]
     Active Substance: SEVOFLURANE
     Indication: Anaesthesia
     Dosage: LIQUID POUR INHALATION PARE VAPEUR
     Route: 055
     Dates: start: 20211118, end: 20211118
  2. PANTOPRAZOLE [Concomitant]
     Active Substance: PANTOPRAZOLE
     Indication: Product used for unknown indication
     Route: 048
     Dates: start: 20211118, end: 20211119
  3. KETAMINE [Concomitant]
     Active Substance: KETAMINE
     Indication: Anaesthesia
     Route: 042
     Dates: start: 20211118, end: 20211118
  4. DEXAMETHASONE [Concomitant]
     Active Substance: DEXAMETHASONE
     Indication: Product used for unknown indication
     Route: 042
     Dates: start: 20211118, end: 20211118
  5. PROPOFOL [Concomitant]
     Active Substance: PROPOFOL
     Indication: Anaesthesia
     Route: 042
     Dates: start: 20211118, end: 20211118
  6. ACETAMINOPHEN [Concomitant]
     Active Substance: ACETAMINOPHEN
     Indication: Anaesthesia
     Route: 042
     Dates: start: 20211118, end: 20211118
  7. SUFENTANIL [Concomitant]
     Active Substance: SUFENTANIL
     Indication: Anaesthesia
     Route: 042
     Dates: start: 20211118, end: 20211118
  8. CHLORHYDRATE DE ROPIVACAINE MONOHYDRATE [Concomitant]
     Indication: Anaesthesia
     Route: 042
     Dates: start: 20211118, end: 20211118
  9. CHLORHYDRATE ONDANSETRON DIHYDRATE [Concomitant]
     Indication: Vomiting
     Dosage: SI BESOIN
     Route: 042
     Dates: start: 20211118, end: 20211120
  10. KETOPROFEN [Concomitant]
     Active Substance: KETOPROFEN
     Indication: Anaesthesia
     Route: 042
     Dates: start: 20211118, end: 20211118
  11. LIDOCAINE [Concomitant]
     Active Substance: LIDOCAINE
     Indication: Anaesthesia
     Route: 042
     Dates: start: 20211118, end: 20211118

REACTIONS (1)
  - Pulmonary alveolar haemorrhage [Recovered/Resolved]

NARRATIVE: CASE EVENT DATE: 20211118
